FAERS Safety Report 14322621 (Version 1)
Quarter: 2017Q4

REPORT INFORMATION
  Report Type: Report from Study
  Country: ES (occurrence: ES)
  Receive Date: 20171225
  Receipt Date: 20171225
  Transmission Date: 20180321
  Serious: Yes (Death, Other)
  Sender: FDA-Public Use
  Company Number: PHHY2016ES159531

PATIENT
  Age: 56 Year
  Sex: Female

DRUGS (1)
  1. SANDOSTATIN LAR DEPOT [Suspect]
     Active Substance: OCTREOTIDE ACETATE
     Indication: NEUROENDOCRINE TUMOUR
     Dosage: 30 MG, UNK
     Route: 030
     Dates: start: 20141001

REACTIONS (6)
  - Tricuspid valve incompetence [Unknown]
  - Post procedural complication [Fatal]
  - Malnutrition [Fatal]
  - Cardiac failure acute [Fatal]
  - Tumour marker increased [Fatal]
  - Diarrhoea [Unknown]

NARRATIVE: CASE EVENT DATE: 20161027
